FAERS Safety Report 8570229-X (Version None)
Quarter: 2012Q3

REPORT INFORMATION
  Report Type: 
  Country: None (occurrence: None)
  Receive Date: 20120803
  Receipt Date: 20120725
  Transmission Date: 20120928
  Serious: Yes (Hospitalization)
  Sender: FDA-Public Use
  Company Number: SE-ASTRAZENECA-2012SE51192

PATIENT
  Age: 24281 Day
  Sex: Male

DRUGS (7)
  1. METOPROLOL TARTRATE [Concomitant]
     Indication: CORONARY ARTERY DISEASE
     Route: 048
  2. SIMVASTATIN [Concomitant]
     Indication: HYPERCHOLESTEROLAEMIA
     Route: 048
  3. NITROLINGUAL [Concomitant]
     Indication: CORONARY ARTERY DISEASE
     Route: 060
  4. FELODIPINE [Concomitant]
     Indication: HYPERTENSION
     Route: 048
  5. ASPIRIN [Suspect]
     Route: 048
     Dates: end: 20120719
  6. LOSARTAN POTASSIUM [Concomitant]
     Indication: CORONARY ARTERY DISEASE
     Route: 048
  7. BRILINTA [Suspect]
     Indication: CORONARY ARTERY DISEASE
     Route: 048
     Dates: start: 20111102, end: 20120718

REACTIONS (1)
  - GASTRIC ULCER [None]
